FAERS Safety Report 7512024-6 (Version None)
Quarter: 2011Q2

REPORT INFORMATION
  Report Type: 
  Country: None (occurrence: None)
  Receive Date: 20110531
  Receipt Date: 20110519
  Transmission Date: 20111010
  Serious: Yes (Hospitalization)
  Sender: FDA-Public Use
  Company Number: FR-JNJFOC-20110400684

PATIENT
  Sex: Male
  Weight: 75 kg

DRUGS (19)
  1. ABIRATERONE [Suspect]
     Indication: PROSTATE CANCER
     Route: 048
     Dates: start: 20110408
  2. ABIRATERONE [Suspect]
     Route: 048
     Dates: end: 20110404
  3. PREDNISONE [Suspect]
     Route: 048
     Dates: start: 20110407, end: 20110410
  4. ALLOPURINOL [Concomitant]
     Indication: GOUT
     Route: 048
     Dates: start: 19880101
  5. LOVENOX [Concomitant]
     Indication: TRANSIENT ISCHAEMIC ATTACK
     Route: 058
     Dates: start: 20110331, end: 20110407
  6. PREDNISONE [Suspect]
     Indication: PROSTATE CANCER
     Route: 048
     Dates: start: 20110323
  7. PREDNISONE [Suspect]
     Route: 048
     Dates: start: 20110412, end: 20110416
  8. PREDNISONE [Suspect]
     Route: 048
     Dates: start: 20110417, end: 20110421
  9. PREDNISONE [Suspect]
     Route: 048
     Dates: start: 20110422, end: 20110426
  10. STABLON [Concomitant]
     Indication: DEPRESSION
     Route: 048
     Dates: start: 20020101
  11. SOLU-MEDROL [Concomitant]
     Indication: PRODUCT USED FOR UNKNOWN INDICATION
     Route: 042
     Dates: start: 20110331, end: 20110404
  12. LYRICA [Concomitant]
     Indication: NEURALGIA
     Route: 048
  13. ATARAX [Concomitant]
     Indication: ANXIETY
     Route: 042
     Dates: start: 20110401, end: 20110405
  14. NEXIUM [Concomitant]
     Indication: GASTROINTESTINAL DISORDER THERAPY
     Route: 048
     Dates: start: 20090607
  15. PRAVASTATIN [Concomitant]
     Indication: HYPERCHOLESTEROLAEMIA
     Route: 048
     Dates: start: 20080811
  16. PLAVIX [Concomitant]
     Indication: CEREBROVASCULAR ACCIDENT
     Route: 048
     Dates: start: 20060801, end: 20110330
  17. PLAVIX [Concomitant]
     Route: 048
     Dates: start: 20110408
  18. PREDNISONE [Suspect]
     Route: 048
     Dates: start: 20110427
  19. ZOLADEX [Concomitant]
     Indication: PROSTATE CANCER
     Route: 058
     Dates: start: 20070725

REACTIONS (10)
  - PYREXIA [None]
  - BONE PAIN [None]
  - WEIGHT INCREASED [None]
  - HYPONATRAEMIA [None]
  - DYSPNOEA [None]
  - INFECTION [None]
  - CONSTIPATION [None]
  - ASTHENIA [None]
  - OEDEMA PERIPHERAL [None]
  - INAPPROPRIATE SCHEDULE OF DRUG ADMINISTRATION [None]
